FAERS Safety Report 9733361 (Version 1)
Quarter: 2013Q4

REPORT INFORMATION
  Report Type: Spontaneous
  Country: NO (occurrence: NO)
  Receive Date: 20131204
  Receipt Date: 20131204
  Transmission Date: 20140711
  Serious: Yes (Hospitalization)
  Sender: FDA-Public Use
  Company Number: NO-ROCHE-1308070

PATIENT
  Age: 70 Year
  Sex: Female

DRUGS (6)
  1. BEVACIZUMAB [Suspect]
     Indication: RECTAL CANCER
     Route: 041
     Dates: start: 20131015, end: 20131015
  2. CALCIUM FOLINATE [Concomitant]
     Indication: RECTAL CANCER
     Route: 041
     Dates: start: 20131001
  3. TRAMADOL [Concomitant]
     Indication: PAIN
     Route: 048
  4. FRAGMIN [Concomitant]
     Indication: THROMBOSIS
     Route: 058
     Dates: start: 20130924
  5. IRINOTECAN [Concomitant]
     Indication: RECTAL CANCER
     Route: 041
     Dates: start: 20131001
  6. FLUOROURACIL [Concomitant]
     Indication: RECTAL CANCER
     Route: 041
     Dates: start: 20131001

REACTIONS (2)
  - Intestinal perforation [Unknown]
  - Colon cancer [Unknown]
